FAERS Safety Report 21917100 (Version 5)
Quarter: 2024Q1

REPORT INFORMATION
  Report Type: Spontaneous
  Country: US (occurrence: US)
  Receive Date: 20230126
  Receipt Date: 20240228
  Transmission Date: 20240409
  Serious: Yes (Other)
  Sender: FDA-Public Use
  Company Number: US-BAYER-2023P006137

PATIENT
  Age: 16 Year
  Sex: Male

DRUGS (2)
  1. KOVALTRY [Suspect]
     Active Substance: ANTIHEMOPHILIC FACTOR, HUMAN RECOMBINANT
     Indication: Factor VIII deficiency
     Dosage: 3000 UNITS (2700-3300) SLOW IV EVERY MONDAY AND THURSDAY
     Route: 042
     Dates: start: 20171004
  2. KOVALTRY [Suspect]
     Active Substance: ANTIHEMOPHILIC FACTOR, HUMAN RECOMBINANT
     Indication: Prophylaxis
     Dosage: 1 DF, ONCE (TO TREAT KNEE BLEEDING)
     Dates: start: 202212

REACTIONS (2)
  - Haemorrhage [Recovered/Resolved]
  - Haemorrhage [None]
